FAERS Safety Report 6245559-7 (Version None)
Quarter: 2009Q2

REPORT INFORMATION
  Report Type: 
  Country: None (occurrence: None)
  Receive Date: 20090619
  Receipt Date: 20090401
  Transmission Date: 20091009
  Serious: No
  Sender: FDA-Public Use
  Company Number: ALL1-2009-00863

PATIENT
  Age: 32 Year
  Sex: Male
  Weight: 99.8 kg

DRUGS (1)
  1. VYVANSE [Suspect]
     Indication: ATTENTION DEFICIT/HYPERACTIVITY DISORDER
     Dosage: 1/XDAY:QD, ORAL
     Route: 048
     Dates: start: 20090325

REACTIONS (5)
  - ANGER [None]
  - ASTHENIA [None]
  - DECREASED APPETITE [None]
  - IRRITABILITY [None]
  - RESPIRATORY TRACT INFECTION [None]
